FAERS Safety Report 6189087-6 (Version None)
Quarter: 2009Q2

REPORT INFORMATION
  Report Type: 
  Country: None (occurrence: None)
  Receive Date: 20090512
  Receipt Date: 20090429
  Transmission Date: 20091009
  Serious: No
  Sender: FDA-Public Use
  Company Number: 2009-195839-NL

PATIENT
  Sex: 0

DRUGS (5)
  1. MIRTAZAPINE [Suspect]
     Indication: DEPRESSION
     Dosage: 15 MG
  2. CITALOPRAM HYDROBROMIDE [Concomitant]
  3. TENOFOVIR [Concomitant]
  4. RITONAVIR [Concomitant]
  5. ATAZANAVIR SULFATE [Concomitant]

REACTIONS (3)
  - HYPOKINESIA [None]
  - SCREAMING [None]
  - VISUAL IMPAIRMENT [None]
